FAERS Safety Report 19701627 (Version 1)
Quarter: 2021Q3

REPORT INFORMATION
  Report Type: Spontaneous
  Country: US (occurrence: US)
  Receive Date: 20210813
  Receipt Date: 20210813
  Transmission Date: 20211014
  Serious: Yes (Other)
  Sender: FDA-Public Use
  Company Number: US-ANAZAOHEALTH CORPORATION-2115023

PATIENT
  Age: 53 Year
  Sex: Female
  Weight: 73.73 kg

DRUGS (3)
  1. TESTOSTERONE. [Concomitant]
     Active Substance: TESTOSTERONE
     Route: 058
     Dates: start: 20190701
  2. ESTRADIOL 10MG PELLET [Suspect]
     Active Substance: ESTRADIOL
     Indication: HORMONE REPLACEMENT THERAPY
     Route: 058
     Dates: start: 20190701
  3. TESTOSTERONE. [Concomitant]
     Active Substance: TESTOSTERONE
     Route: 058
     Dates: start: 20190701

REACTIONS (1)
  - Invasive ductal breast carcinoma [Unknown]
